FAERS Safety Report 6348525-6 (Version None)
Quarter: 2009Q3

REPORT INFORMATION
  Report Type: 
  Country: None (occurrence: None)
  Receive Date: 20090911
  Receipt Date: 20090902
  Transmission Date: 20100115
  Serious: Yes (Hospitalization, Disabling, Congenital Anomaly, Other)
  Sender: FDA-Public Use
  Company Number: US-RANBAXY-2009US-26789

PATIENT

DRUGS (5)
  1. ISOTRETINOIN [Suspect]
     Indication: DRUG USE FOR UNKNOWN INDICATION
     Dosage: 40 MG, QD
     Route: 015
     Dates: start: 20081031, end: 20081218
  2. REGLAN [Concomitant]
     Indication: GASTROOESOPHAGEAL REFLUX DISEASE
     Dosage: 0.35 MG QID
     Route: 048
     Dates: start: 20090731
  3. LANSOPRAZOLE [Concomitant]
     Indication: GASTROOESOPHAGEAL REFLUX DISEASE
     Dosage: 3.2 MG BID
     Route: 048
     Dates: start: 20090729
  4. PHENYLEPHRINE [Concomitant]
     Indication: DRUG USE FOR UNKNOWN INDICATION
     Dosage: UNK
     Dates: start: 20090724, end: 20090726
  5. GENTAMICIN [Concomitant]
     Indication: DRUG USE FOR UNKNOWN INDICATION
     Route: 047
     Dates: start: 20090723, end: 20090730

REACTIONS (9)
  - DEAFNESS UNILATERAL [None]
  - DYSMORPHISM [None]
  - EAR MALFORMATION [None]
  - ESCHERICHIA INFECTION [None]
  - FEEDING DISORDER NEONATAL [None]
  - GASTROOESOPHAGEAL REFLUX DISEASE [None]
  - OTITIS MEDIA [None]
  - SUBDURAL HAEMATOMA [None]
  - WEIGHT GAIN POOR [None]
